FAERS Safety Report 12981597 (Version 2)
Quarter: 2016Q4

REPORT INFORMATION
  Report Type: Spontaneous
  Country: JP (occurrence: JP)
  Receive Date: 20161129
  Receipt Date: 20161226
  Transmission Date: 20170207
  Serious: Yes (Hospitalization)
  Sender: FDA-Public Use
  Company Number: JP-ROCHE-1860942

PATIENT
  Age: 51 Year
  Sex: Female
  Weight: 47 kg

DRUGS (4)
  1. AVASTIN [Suspect]
     Active Substance: BEVACIZUMAB
     Indication: CERVIX CARCINOMA
     Dosage: TREATMENT LINE: 3RD LINE?COMPLETED ADMINISTERING CYCLE NUMBER: 1
     Route: 041
     Dates: start: 20160721, end: 20160721
  2. CARBOPLATIN. [Suspect]
     Active Substance: CARBOPLATIN
     Indication: CERVIX CARCINOMA
     Route: 041
     Dates: start: 20160721, end: 20160721
  3. PACLITAXEL. [Suspect]
     Active Substance: PACLITAXEL
     Route: 041
     Dates: start: 20160721, end: 20160721
  4. PACLITAXEL. [Suspect]
     Active Substance: PACLITAXEL
     Indication: CERVIX CARCINOMA
     Route: 065
     Dates: start: 20130724, end: 20160623

REACTIONS (3)
  - Bladder tamponade [Recovering/Resolving]
  - Acute kidney injury [Recovering/Resolving]
  - Cystitis haemorrhagic [Recovering/Resolving]

NARRATIVE: CASE EVENT DATE: 20160812
